FAERS Safety Report 9855299 (Version 1)
Quarter: 2013Q4

REPORT INFORMATION
  Report Type: Spontaneous
  Country: US (occurrence: None)
  Receive Date: 20131226
  Receipt Date: 20131226
  Transmission Date: 20140711
  Serious: Yes (Other)
  Sender: FDA-Public Use
  Company Number: PHEH2013US005363

PATIENT
  Age: 13 Year
  Sex: Female

DRUGS (5)
  1. AFINITOR (RAD) UNKNOWN [Suspect]
     Indication: TUBEROUS SCLEROSIS
     Route: 048
     Dates: start: 20091209
  2. CELEXA (CITALOPRAM HYDROBROMIDE) [Concomitant]
  3. PROGESTOGENS (NO INGREDIENTS/SUBSTANCES) [Concomitant]
  4. VIMPAT (LACOSAMIDE) [Concomitant]
  5. CLARITIN (LORATADINE) [Concomitant]

REACTIONS (4)
  - Convulsion [None]
  - Syphilis [None]
  - Oral herpes [None]
  - Blood cholesterol increased [None]
